FAERS Safety Report 6289918-5 (Version None)
Quarter: 2009Q3

REPORT INFORMATION
  Report Type: 
  Country: None (occurrence: None)
  Receive Date: 20090730
  Receipt Date: 20080917
  Transmission Date: 20100115
  Serious: No
  Sender: FDA-Public Use
  Company Number: US-BRISTOL-MYERS SQUIBB COMPANY-14338370

PATIENT
  Age: 30 Year
  Sex: Male
  Weight: 125 kg

DRUGS (8)
  1. COUMADIN [Suspect]
     Dosage: DOSAGE TITRATED UP TO 15 MG ON 15SEP08( 3 TABLETS OF 5 MG).
     Dates: start: 20080909, end: 20080915
  2. VANCOMYCIN HCL [Concomitant]
  3. ZOSYN [Concomitant]
  4. FRAGMIN [Concomitant]
  5. LASIX [Concomitant]
  6. POTASSIUM CHLORIDE [Concomitant]
  7. MULTI-VITAMIN [Concomitant]
  8. PROTONIX [Concomitant]

REACTIONS (1)
  - INTERNATIONAL NORMALISED RATIO DECREASED [None]
